FAERS Safety Report 20431218 (Version 4)
Quarter: 2022Q2

REPORT INFORMATION
  Report Type: Other
  Country: BR (occurrence: None)
  Receive Date: 20220204
  Receipt Date: 20220620
  Transmission Date: 20220721
  Serious: Yes (Other)
  Sender: FDA-Public Use
  Company Number: BR-ROCHE-3013449

PATIENT
  Sex: Female
  Weight: 70 kg

DRUGS (5)
  1. ACTEMRA [Suspect]
     Active Substance: TOCILIZUMAB
     Indication: Rheumatoid arthritis
     Route: 042
     Dates: start: 20210929
  2. ATENOLOL [Concomitant]
     Active Substance: ATENOLOL
     Indication: Hypertension
  3. PURAN [Concomitant]
     Active Substance: LEVOTHYROXINE SODIUM
     Indication: Thyroid disorder
  4. GLIFAGE [Concomitant]
     Active Substance: METFORMIN HYDROCHLORIDE
     Indication: Diabetes mellitus
  5. PIROXICAM [Concomitant]
     Active Substance: PIROXICAM

REACTIONS (11)
  - Cerebrovascular accident [Recovered/Resolved]
  - Rash erythematous [Recovered/Resolved]
  - Blister [Recovering/Resolving]
  - Gastrointestinal disorder [Recovered/Resolved]
  - Haemorrhage [Recovered/Resolved]
  - Wound [Recovered/Resolved]
  - White blood cell count increased [Recovered/Resolved]
  - Red blood cell abnormality [Recovered/Resolved]
  - Platelet disorder [Recovered/Resolved]
  - Peripheral swelling [Recovered/Resolved]
  - Joint swelling [Recovered/Resolved]
